FAERS Safety Report 6011092-0 (Version None)
Quarter: 2008Q4

REPORT INFORMATION
  Report Type: 
  Country: None (occurrence: None)
  Receive Date: 20081218
  Receipt Date: 20081211
  Transmission Date: 20090506
  Serious: Yes (Other)
  Sender: FDA-Public Use
  Company Number: US-AVENTIS-200818407US

PATIENT
  Sex: Male

DRUGS (13)
  1. LANTUS [Suspect]
     Dosage: DOSE: 28 TO 32
     Route: 058
     Dates: start: 20050101
  2. HUMALOG [Concomitant]
     Indication: BLOOD GLUCOSE INCREASED
     Dosage: DOSE: UNK
  3. DANTRIUM [Concomitant]
     Dosage: DOSE: UNK
  4. METOPROLOL TARTRATE [Concomitant]
     Dosage: DOSE: UNK
  5. RITALIN [Concomitant]
     Dosage: DOSE: UNK
  6. LAMICTAL [Concomitant]
     Dosage: DOSE: UNK
  7. PROZAC [Concomitant]
     Dosage: DOSE: UNK
  8. PREVACID [Concomitant]
     Dosage: DOSE: UNK
  9. LISINOPRIL [Concomitant]
     Dosage: DOSE: UNK
  10. MACROBID                           /00024401/ [Concomitant]
     Dosage: DOSE: UNK
  11. DITROPAN [Concomitant]
     Dosage: DOSE: UNK
  12. KLONOPIN [Concomitant]
     Dosage: DOSE: UNK
  13. HYDROCODONE BITARTRATE [Concomitant]
     Dosage: DOSE: UNK

REACTIONS (2)
  - BLOOD GLUCOSE INCREASED [None]
  - CEREBROVASCULAR ACCIDENT [None]
